FAERS Safety Report 10589461 (Version 1)
Quarter: 2014Q4

REPORT INFORMATION
  Report Type: Spontaneous
  Country: US (occurrence: None)
  Receive Date: 20141114
  Receipt Date: 20141114
  Transmission Date: 20150529
  Serious: Yes (Death)
  Sender: FDA-Public Use
  Company Number: 2014STPI000626

PATIENT
  Age: 22 Year
  Sex: Male

DRUGS (1)
  1. ADAGEN [Suspect]
     Active Substance: PEGADEMASE BOVINE
     Indication: COMBINED IMMUNODEFICIENCY
     Route: 030
     Dates: start: 20140822

REACTIONS (1)
  - Death [None]

NARRATIVE: CASE EVENT DATE: 20141106
